FAERS Safety Report 5076648-0 (Version None)
Quarter: 2006Q3

REPORT INFORMATION
  Report Type: 
  Country: None (occurrence: None)
  Receive Date: 20060810
  Receipt Date: 20050928
  Transmission Date: 20061208
  Serious: Yes (Life-Threatening, Hospitalization)
  Sender: FDA-Public Use
  Company Number: US-BRISTOL-MYERS SQUIBB COMPANY-13125794

PATIENT
  Age: 48 Year
  Sex: Female

DRUGS (6)
  1. CISPLATIN [Suspect]
     Indication: GASTRIC CANCER
     Route: 042
     Dates: start: 20041215, end: 20050706
  2. TS-1 [Suspect]
     Indication: GASTRIC CANCER
     Route: 048
     Dates: start: 20050706, end: 20050811
  3. ALBUTEROL SPIROS [Concomitant]
     Indication: ASTHMA
     Route: 055
     Dates: start: 20010101
  4. ZOFRAN [Concomitant]
     Indication: NAUSEA
     Route: 042
     Dates: start: 20041215
  5. ZOFRAN [Concomitant]
     Route: 048
     Dates: start: 20040915
  6. REGLAN [Concomitant]
     Indication: NAUSEA
     Route: 048
     Dates: start: 20050712

REACTIONS (27)
  - ABDOMINAL PAIN [None]
  - ANOREXIA [None]
  - ASCITES [None]
  - ASPIRATION [None]
  - ASTHENIA [None]
  - ATELECTASIS [None]
  - BACK PAIN [None]
  - BLOOD CREATINE INCREASED [None]
  - BLOOD POTASSIUM INCREASED [None]
  - BOWEL SOUNDS ABNORMAL [None]
  - CARDIAC FAILURE CONGESTIVE [None]
  - CARDIOMEGALY [None]
  - DIARRHOEA [None]
  - DISEASE PROGRESSION [None]
  - DYSPNOEA [None]
  - ELECTROCARDIOGRAM QRS COMPLEX ABNORMAL [None]
  - HAEMOGLOBIN DECREASED [None]
  - NAUSEA [None]
  - PERICARDIAL EFFUSION [None]
  - PLATELET COUNT DECREASED [None]
  - PNEUMONIA [None]
  - PULMONARY EMBOLISM [None]
  - PULMONARY OEDEMA [None]
  - RALES [None]
  - RESPIRATORY DISTRESS [None]
  - SINUS TACHYCARDIA [None]
  - VOMITING [None]
